FAERS Safety Report 9522971 (Version 1)
Quarter: 2013Q1

REPORT INFORMATION
  Report Type: Spontaneous
  Country: US (occurrence: None)
  Receive Date: 20130305
  Receipt Date: 20130305
  Transmission Date: 20140127
  Serious: Yes (Other)
  Sender: FDA-Public Use
  Company Number: 163-21880-12031974

PATIENT
  Age: 65 Year
  Sex: Male
  Weight: 100.97 kg

DRUGS (17)
  1. REVLIMID [Suspect]
     Indication: PLASMA CELL MYELOMA
     Dosage: DAILY FOR 14 DAYS
     Route: 048
     Dates: start: 20110921, end: 201110
  2. TUSSIONEX (TUSSIONEX PENNKINETIC) (UNKNOWN) [Concomitant]
  3. OXYCODONE (OXYCODONE) (UNKNOWN) (OXYCODONE) [Concomitant]
  4. HYDROCHLOROTHIAZIDE (HYDROCHLOROTHIAZIDE) (UNKNOWN) [Concomitant]
  5. METFORMIN (METFORMIN) (UNKNOWN) [Concomitant]
  6. GLIMEPIRIDE (GLIMEPIRIDE) (UNKNOWN) [Concomitant]
  7. FENTANYL (FENTANYL) (UNKNOWN) (FENTANYL) [Concomitant]
  8. ASPIRIN (ACETYLSALICYLIC ACID) (UNKNOWN) (ACETYLSALICYLIC ACID) [Concomitant]
  9. LIPITOR (ATORVASTATIN) (UNKNOWN) [Concomitant]
  10. DECADRONE (DEXAMETHASONE) (UNKNOWN) [Concomitant]
  11. VELCADE [Concomitant]
  12. HCTZ (UNKNOWN) [Concomitant]
  13. GLIPIZIDE (GLIPIZIDE) (UNKNOWN) [Concomitant]
  14. ACYCLOVIR (ACICLOVIR) (UNKNOWN) [Concomitant]
  15. BACTRIM (BACTRIM) (UNKNOWN) [Concomitant]
  16. NIASPAN (NICOTINIC ACID) (UNKNOWN) [Concomitant]
  17. ATENELOL (UNKNOWN) [Concomitant]

REACTIONS (1)
  - Rash [None]
